FAERS Safety Report 8477301-3 (Version None)
Quarter: 2012Q2

REPORT INFORMATION
  Report Type: 
  Country: None (occurrence: None)
  Receive Date: 20120629
  Receipt Date: 20120620
  Transmission Date: 20120825
  Serious: Yes (Hospitalization, Other)
  Sender: FDA-Public Use
  Company Number: US-JNJFOC-20100805186

PATIENT
  Sex: Female

DRUGS (8)
  1. LEVAQUIN [Suspect]
     Route: 042
     Dates: start: 20031218, end: 20031224
  2. LEVAQUIN [Suspect]
     Route: 048
  3. LEVAQUIN [Suspect]
     Route: 048
  4. LEVAQUIN [Suspect]
     Indication: LUNG INFECTION
     Route: 042
     Dates: start: 20031218, end: 20031224
  5. LEVAQUIN [Suspect]
     Indication: PNEUMONIA
     Route: 048
     Dates: start: 20080101, end: 20080101
  6. LEVAQUIN [Suspect]
     Route: 042
     Dates: start: 20090106, end: 20090112
  7. LEVAQUIN [Suspect]
     Indication: BRONCHITIS
     Route: 048
     Dates: start: 20080101, end: 20080101
  8. LEVAQUIN [Suspect]
     Route: 042
     Dates: start: 20090106, end: 20090112

REACTIONS (5)
  - OSTEOARTHROPATHY [None]
  - SYNOVITIS [None]
  - BURSITIS [None]
  - ROTATOR CUFF SYNDROME [None]
  - TENOSYNOVITIS [None]
